FAERS Safety Report 22210516 (Version 1)
Quarter: 2023Q2

REPORT INFORMATION
  Report Type: Spontaneous
  Country: GB (occurrence: GB)
  Receive Date: 20230414
  Receipt Date: 20230414
  Transmission Date: 20230722
  Serious: Yes (Other)
  Sender: FDA-Public Use
  Company Number: GB-MHRA-MED-202304061125535600-BLTSK

PATIENT
  Sex: Male

DRUGS (2)
  1. TAMSULOSIN [Suspect]
     Active Substance: TAMSULOSIN
     Indication: Dysuria
     Dosage: 400 UG
     Route: 065
     Dates: start: 20210703
  2. TAMSULOSIN [Suspect]
     Active Substance: TAMSULOSIN
     Indication: Adverse drug reaction

REACTIONS (2)
  - Dizziness [Not Recovered/Not Resolved]
  - Medication error [Unknown]

NARRATIVE: CASE EVENT DATE: 20211001
